FAERS Safety Report 6269221-X (Version None)
Quarter: 2009Q3

REPORT INFORMATION
  Report Type: 
  Country: None (occurrence: None)
  Receive Date: 20090715
  Receipt Date: 20090601
  Transmission Date: 20100115
  Serious: No
  Sender: FDA-Public Use
  Company Number: US-BAYER-200924131NA

PATIENT
  Age: 49 Year
  Sex: Female

DRUGS (5)
  1. MAGNEVIST [Suspect]
     Indication: NUCLEAR MAGNETIC RESONANCE IMAGING
     Dosage: HAND PUSH INJECTION
     Route: 042
     Dates: start: 20090507, end: 20090507
  2. NORCO [Concomitant]
  3. ASINTINAL PAIN PATCH [Concomitant]
  4. PROGESTERONE [Concomitant]
  5. IBUPROFEN [Concomitant]

REACTIONS (1)
  - URTICARIA [None]
